FAERS Safety Report 8269755-2 (Version None)
Quarter: 2012Q2

REPORT INFORMATION
  Report Type: 
  Country: None (occurrence: None)
  Receive Date: 20120406
  Receipt Date: 20120329
  Transmission Date: 20120825
  Serious: Yes (Hospitalization, Other)
  Sender: FDA-Public Use
  Company Number: ADR-2012-00207

PATIENT
  Age: 20 Year
  Sex: Female

DRUGS (2)
  1. BACLOFEN [Suspect]
     Indication: CEREBRAL PALSY
  2. BACLOFEN [Suspect]
     Indication: MUSCLE SPASTICITY

REACTIONS (12)
  - MEDICAL DEVICE COMPLICATION [None]
  - DIARRHOEA [None]
  - IMPLANT SITE SWELLING [None]
  - DRUG EFFECT DECREASED [None]
  - PYREXIA [None]
  - IMPLANT SITE EFFUSION [None]
  - DEVICE DISLOCATION [None]
  - MUSCLE SPASMS [None]
  - CONDITION AGGRAVATED [None]
  - POST LUMBAR PUNCTURE SYNDROME [None]
  - FATIGUE [None]
  - DEVICE OCCLUSION [None]
